FAERS Safety Report 7834058-4 (Version None)
Quarter: 2011Q4

REPORT INFORMATION
  Report Type: 
  Country: None (occurrence: None)
  Receive Date: 20111024
  Receipt Date: 20111024
  Transmission Date: 20120403
  Serious: Yes (Other)
  Sender: FDA-Public Use
  Company Number: None

PATIENT
  Age: 41 Year
  Sex: Male
  Weight: 68.038 kg

DRUGS (1)
  1. GEODON [Suspect]
     Indication: BIPOLAR DISORDER
     Dosage: 1 PILL
     Route: 048

REACTIONS (4)
  - BLINDNESS TRANSIENT [None]
  - GLAUCOMA [None]
  - EYE PAIN [None]
  - VISUAL FIELD DEFECT [None]
